FAERS Safety Report 7380735-1 (Version None)
Quarter: 2011Q1

REPORT INFORMATION
  Report Type: 
  Country: None (occurrence: None)
  Receive Date: 20110329
  Receipt Date: 20110318
  Transmission Date: 20110831
  Serious: Yes (Death, Hospitalization)
  Sender: FDA-Public Use
  Company Number: A0753211A

PATIENT
  Age: 73 Year
  Sex: Male
  Weight: 125 kg

DRUGS (6)
  1. PLAVIX [Concomitant]
  2. TORSEMIDE [Concomitant]
     Dates: start: 20041223, end: 20060706
  3. REGULAR INSULIN [Concomitant]
  4. FOLIC ACID [Concomitant]
  5. AVANDIA [Suspect]
     Dosage: 8MG PER DAY
     Route: 048
     Dates: start: 20031220, end: 20060812
  6. CRESTOR [Concomitant]
     Dates: start: 20040927, end: 20060805

REACTIONS (4)
  - CORONARY ARTERY DISEASE [None]
  - MYOCARDIAL INFARCTION [None]
  - CARDIAC FAILURE CONGESTIVE [None]
  - HYPERLIPIDAEMIA [None]
